FAERS Safety Report 7766258-6 (Version None)
Quarter: 2011Q3

REPORT INFORMATION
  Report Type: 
  Country: None (occurrence: None)
  Receive Date: 20110922
  Receipt Date: 20110919
  Transmission Date: 20111222
  Serious: Yes (Other)
  Sender: FDA-Public Use
  Company Number: US-AMGEN-USASP2011045596

PATIENT
  Age: 58 Year
  Sex: Female

DRUGS (4)
  1. ENBREL [Suspect]
     Indication: RHEUMATOID ARTHRITIS
     Dosage: 50 MG, QWK
     Route: 058
     Dates: start: 20110415, end: 20110906
  2. PREDNISONE [Concomitant]
  3. FOLIC ACID [Concomitant]
     Dosage: EVERYDAY EXCEPT FOR DAY OF METHOTREXATE
  4. METHOTREXATE [Concomitant]
     Indication: RHEUMATOID ARTHRITIS
     Dosage: 20 MG, UNK
     Route: 048
     Dates: start: 20101130

REACTIONS (11)
  - VISION BLURRED [None]
  - ARTHRALGIA [None]
  - SLEEP DISORDER [None]
  - BACK PAIN [None]
  - FATIGUE [None]
  - MUSCULOSKELETAL STIFFNESS [None]
  - FIBROMYALGIA [None]
  - INFLUENZA LIKE ILLNESS [None]
  - ABDOMINAL PAIN UPPER [None]
  - HEADACHE [None]
  - DRY MOUTH [None]
